FAERS Safety Report 7438484-7 (Version None)
Quarter: 2011Q2

REPORT INFORMATION
  Report Type: 
  Country: None (occurrence: None)
  Receive Date: 20110426
  Receipt Date: 20110421
  Transmission Date: 20111010
  Serious: Yes (Death, Other)
  Sender: FDA-Public Use
  Company Number: US-PFIZER INC-2011087778

PATIENT
  Age: 25 Year
  Sex: Male

DRUGS (3)
  1. XANAX [Suspect]
  2. OXYCODONE [Suspect]
  3. COCAINE [Suspect]

REACTIONS (1)
  - TOXICITY TO VARIOUS AGENTS [None]
